FAERS Safety Report 5205822-5 (Version None)
Quarter: 2007Q1

REPORT INFORMATION
  Report Type: 
  Country: None (occurrence: None)
  Receive Date: 20070105
  Receipt Date: 20070105
  Transmission Date: 20070707
  Serious: Yes (Other)
  Sender: FDA-Public Use
  Company Number: None

PATIENT
  Sex: Female
  Weight: 46.2669 kg

DRUGS (2)
  1. RISPERDAL [Suspect]
     Indication: AGITATION
     Dosage: 1MG  1 TAB QPM
     Dates: start: 20061218, end: 20061220
  2. RISPERDAL [Suspect]
     Indication: AGITATION
     Dosage: 1MG  1 TAB QPM
     Dates: start: 20061223, end: 20061225

REACTIONS (1)
  - HICCUPS [None]
